FAERS Safety Report 6158911-5 (Version None)
Quarter: 2009Q2

REPORT INFORMATION
  Report Type: 
  Country: None (occurrence: None)
  Receive Date: 20090415
  Receipt Date: 20090405
  Transmission Date: 20091009
  Serious: Yes (Hospitalization)
  Sender: FDA-Public Use
  Company Number: CIO08021376

PATIENT
  Age: 68 Year
  Sex: Male
  Weight: 71.2 kg

DRUGS (2)
  1. NYQUIL COLD/FLU, PSEUDOEPHEDRINE FREE (PARACETAMOL 325 MG, DEXTROMETHO [Suspect]
     Indication: NASAL CONGESTION
     Dosage: 1 LIQCAP,1 ONLY FOR 1 DAY, ORAL
     Route: 048
     Dates: start: 20081209, end: 20081209
  2. NYQUIL COLD/FLU, PSEUDOEPHEDRINE FREE (PARACETAMOL 325 MG, DEXTROMETHO [Suspect]
     Indication: SLEEP DISORDER
     Dosage: 1 LIQCAP,1 ONLY FOR 1 DAY, ORAL
     Route: 048
     Dates: start: 20081209, end: 20081209

REACTIONS (3)
  - BLOOD PRESSURE DECREASED [None]
  - LOSS OF CONSCIOUSNESS [None]
  - SOMNOLENCE [None]
